FAERS Safety Report 18477255 (Version 1)
Quarter: 2020Q4

REPORT INFORMATION
  Report Type: Spontaneous
  Country: ES (occurrence: ES)
  Receive Date: 20201107
  Receipt Date: 20201107
  Transmission Date: 20210114
  Serious: Yes (Other)
  Sender: FDA-Public Use
  Company Number: ES-TEVA-2020-ES-1845084

PATIENT
  Age: 21 Year
  Sex: Male
  Weight: 58.1 kg

DRUGS (18)
  1. VORICONAZOL (2878A) [Suspect]
     Active Substance: VORICONAZOLE
     Indication: ASPERGILLUS INFECTION
     Dosage: FROM 09/17 TO 09/18 360 MG EVERY 12H ----- FROM 09/18 TO 09/19 250 MG EVERY 12H
     Route: 041
     Dates: start: 20200918, end: 20200919
  2. ACICLOVIR 800 MG COMPRIMIDO [Concomitant]
  3. PREDNISONA (886A) [Concomitant]
     Active Substance: PREDNISONE
  4. SINGULAIR 10 MG COMPRIMIDOS RECUBIERTOS CON PELICULA [Concomitant]
  5. ACFOL [Concomitant]
     Active Substance: FOLIC ACID
  6. ADOPORT 1 MG CAPSULAS DURAS EFG [Concomitant]
  7. MAGNESIO (22A) [Concomitant]
  8. LEVOFLOXACINO 500 MG COMPRIMIDO [Concomitant]
     Active Substance: LEVOFLOXACIN
  9. FERROSANOL [Concomitant]
     Active Substance: FERROUS GLUCONATE
  10. UROTROL NEO 4 MG CAPSULAS DURAS DE LIBERACION PROLONGADA [Concomitant]
  11. JAKAVI [Concomitant]
     Active Substance: RUXOLITINIB
  12. SEPTRIN FORTE 160 MG/800 MG COMPRIMIDOS [Concomitant]
  13. ESCITALOPRAM [Concomitant]
     Active Substance: ESCITALOPRAM OXALATE
  14. FLIXOTIDE 250 MICROGRAMOS, SUSPENSION PARA INHALACION EN ENVASE A PRES [Concomitant]
  15. VENTOLIN [Concomitant]
     Active Substance: ALBUTEROL SULFATE
  16. AZITROMICINA (7019A) [Concomitant]
     Active Substance: AZITHROMYCIN
  17. OMEPRAZOL (2141A) [Concomitant]
     Active Substance: OMEPRAZOLE
  18. ACETILCISTEINA 600 MG 10 COMPRIMIDOS EFERVESCENTES [Concomitant]

REACTIONS (1)
  - Hallucination, visual [Recovered/Resolved]

NARRATIVE: CASE EVENT DATE: 20200918
